FAERS Safety Report 4855165-4 (Version None)
Quarter: 2005Q4

REPORT INFORMATION
  Report Type: 
  Country: None (occurrence: None)
  Receive Date: 20051215
  Receipt Date: 20050630
  Transmission Date: 20060501
  Serious: Yes (Hospitalization)
  Sender: FDA-Public Use
  Company Number: US-MERCK-0507USA00187

PATIENT
  Age: 67 Year
  Sex: Female
  Weight: 58 kg

DRUGS (1)
  1. VIOXX [Suspect]
     Indication: ARTHRITIS
     Route: 048
     Dates: start: 20030701, end: 20041001

REACTIONS (4)
  - ADVERSE EVENT [None]
  - ANXIETY [None]
  - MYOCARDIAL INFARCTION [None]
  - NERVOUSNESS [None]
